FAERS Safety Report 7689490-9 (Version None)
Quarter: 2011Q3

REPORT INFORMATION
  Report Type: 
  Country: None (occurrence: None)
  Receive Date: 20110817
  Receipt Date: 20110812
  Transmission Date: 20111222
  Serious: Yes (Other)
  Sender: FDA-Public Use
  Company Number: US-PFIZER INC-2011168618

PATIENT
  Sex: Male

DRUGS (1)
  1. SUTENT [Suspect]
     Indication: RENAL CELL CARCINOMA
     Dosage: 50 MG, DAY 22 OF 42 DAYS
     Dates: start: 20110704

REACTIONS (2)
  - BRADYCARDIA [None]
  - CARDIAC PACEMAKER INSERTION [None]
